FAERS Safety Report 7117122 (Version 3)
Quarter: 2013Q2

REPORT INFORMATION
  Report Type: Report from Study
  Country: US (occurrence: US)
  Receive Date: 20090917
  Receipt Date: 20130508
  Transmission Date: 20140414
  Serious: Yes (Death, Hospitalization)
  Sender: FDA-Public Use
  Company Number: US-ROCHE-656073

PATIENT
  Age: 84 Year
  Sex: Female
  Weight: 59 kg

DRUGS (5)
  1. CAPECITABINE [Suspect]
     Indication: COLORECTAL CANCER
     Route: 048
     Dates: start: 20090728, end: 20090903
  2. ZOFRAN [Concomitant]
     Indication: NAUSEA
     Route: 042
  3. LOVENOX [Concomitant]
     Indication: DEEP VEIN THROMBOSIS
     Route: 058
     Dates: start: 20090916
  4. NEXIUM [Concomitant]
     Indication: GASTROOESOPHAGEAL REFLUX DISEASE
     Route: 048
  5. SYNTHROID [Concomitant]

REACTIONS (3)
  - Disease progression [Fatal]
  - Diarrhoea [Unknown]
  - Electrolyte imbalance [Unknown]
